FAERS Safety Report 9633678 (Version 1)
Quarter: 2013Q4

REPORT INFORMATION
  Report Type: Spontaneous
  Country: AU (occurrence: None)
  Receive Date: 20131017
  Receipt Date: 20131017
  Transmission Date: 20140711
  Serious: Yes (Other)
  Sender: FDA-Public Use
  Company Number: 2013P1020097

PATIENT
  Age: 60 Year
  Sex: Female

DRUGS (2)
  1. GEMFIBROZIL [Suspect]
  2. UNSPECIFIED STATINS [Suspect]

REACTIONS (3)
  - Rhabdomyolysis [None]
  - Drug interaction [None]
  - Myositis [None]
